FAERS Safety Report 7416195-1 (Version None)
Quarter: 2011Q2

REPORT INFORMATION
  Report Type: 
  Country: None (occurrence: None)
  Receive Date: 20110414
  Receipt Date: 20110411
  Transmission Date: 20111010
  Serious: Yes (Death, Hospitalization, Other)
  Sender: FDA-Public Use
  Company Number: BR-ABBOTT-11P-020-0718270-00

PATIENT
  Sex: Female
  Weight: 79 kg

DRUGS (6)
  1. METHOTREXATE [Suspect]
     Indication: ANKYLOSING SPONDYLITIS
  2. HUMIRA [Suspect]
     Indication: ANKYLOSING SPONDYLITIS
     Route: 058
     Dates: start: 20090203, end: 20101201
  3. GLUCOSAMINE SULFATE [Concomitant]
     Indication: ANKYLOSING SPONDYLITIS
  4. FOLIC ACID [Concomitant]
     Indication: ANKYLOSING SPONDYLITIS
  5. PREDNISONE [Concomitant]
     Indication: ANKYLOSING SPONDYLITIS
  6. METICORTEN [Concomitant]
     Indication: ANKYLOSING SPONDYLITIS

REACTIONS (9)
  - ACUTE RESPIRATORY FAILURE [None]
  - HEADACHE [None]
  - RENAL FAILURE [None]
  - RHINORRHOEA [None]
  - MALAISE [None]
  - VOMITING [None]
  - VIRAL INFECTION [None]
  - CHRONIC HEPATIC FAILURE [None]
  - HEPATITIS [None]
